FAERS Safety Report 5142763-6 (Version None)
Quarter: 2006Q4

REPORT INFORMATION
  Report Type: 
  Country: None (occurrence: None)
  Receive Date: 20061027
  Receipt Date: 20061010
  Transmission Date: 20070319
  Serious: Yes (Hospitalization)
  Sender: FDA-Public Use
  Company Number: 229728

PATIENT
  Age: 55 Year
  Sex: Male
  Weight: 68 kg

DRUGS (7)
  1. AVASTIN [Suspect]
     Indication: COLORECTAL CANCER
     Dosage: 5 MG/KG, Q2W, INTRAVENOUS
     Route: 042
     Dates: start: 20051207, end: 20060801
  2. FLUOROURACIL [Suspect]
     Indication: COLORECTAL CANCER
     Dosage: SEE IMAGE
     Route: 042
     Dates: start: 20051207, end: 20060802
  3. FLUOROURACIL [Suspect]
     Indication: COLORECTAL CANCER
     Dosage: SEE IMAGE
     Route: 042
     Dates: start: 20051207, end: 20060803
  4. LEUCOVORIN CALCIUM [Suspect]
     Indication: COLORECTAL CANCER
     Dosage: 100 MG/M2, Q2W, INTRAVENOUS
     Route: 042
     Dates: start: 20051207, end: 20060808
  5. OXALIPLATIN [Suspect]
     Indication: COLORECTAL CANCER METASTATIC
     Dosage: 85 MG/M2, Q2W, INTRAVENOUS
     Route: 042
     Dates: start: 20051207, end: 20060801
  6. MS CONTIN [Suspect]
     Indication: CANCER PAIN
     Dosage: 60 MG
     Dates: start: 20060107
  7. MORPHINE [Suspect]
     Indication: CANCER PAIN
     Dosage: 10 MG, BID
     Dates: start: 20051130

REACTIONS (22)
  - ABDOMINAL MASS [None]
  - ANOREXIA [None]
  - CONSTIPATION [None]
  - DEHYDRATION [None]
  - DISEASE PROGRESSION [None]
  - FAECALOMA [None]
  - FATIGUE [None]
  - HYDRONEPHROSIS [None]
  - INFLAMMATION [None]
  - INTERSTITIAL LUNG DISEASE [None]
  - LEFT VENTRICULAR FAILURE [None]
  - LYMPHANGIOSIS CARCINOMATOSA [None]
  - NEUTROPENIA [None]
  - PLEURAL EFFUSION [None]
  - PULMONARY OEDEMA [None]
  - REFUSAL OF TREATMENT BY PATIENT [None]
  - RENAL HYPERTENSION [None]
  - RENAL IMPAIRMENT [None]
  - SEPSIS [None]
  - SHOCK [None]
  - STOMATITIS [None]
  - URINARY TRACT OBSTRUCTION [None]
